FAERS Safety Report 18485191 (Version 1)
Quarter: 2020Q4

REPORT INFORMATION
  Report Type: Report from Study
  Country: US (occurrence: US)
  Receive Date: 20201110
  Receipt Date: 20201110
  Transmission Date: 20210114
  Serious: Yes (Other)
  Sender: FDA-Public Use
  Company Number: US-ALK-ABELLO A/S-2020AA003768

PATIENT

DRUGS (1)
  1. STAE BULK 238 [Suspect]
     Active Substance: CYNODON DACTYLON POLLEN
     Indication: PRODUCT USED FOR UNKNOWN INDICATION
     Dosage: 10000 BAU/ML

REACTIONS (2)
  - Anaphylactic reaction [Recovered/Resolved]
  - Accidental exposure to product [Recovered/Resolved]
